FAERS Safety Report 8839657 (Version 1)
Quarter: 2012Q4

REPORT INFORMATION
  Report Type: 
  Country: US (occurrence: US)
  Receive Date: 20121015
  Receipt Date: 20121015
  Transmission Date: 20130627
  Serious: Yes (Other)
  Sender: FDA-Public Use
  Company Number: US-AMGEN-USASP2012064139

PATIENT
  Sex: Male

DRUGS (2)
  1. FILGRASTIM [Suspect]
     Indication: BURKITT^S LYMPHOMA STAGE I
     Dosage: 480 mug, qd
  2. CHEMOTHERAPEUTICS [Concomitant]

REACTIONS (2)
  - Bone marrow necrosis [Unknown]
  - Haemorrhage [Unknown]
